FAERS Safety Report 16082414 (Version 1)
Quarter: 2019Q1

REPORT INFORMATION
  Report Type: Report from Study
  Country: None (occurrence: AR)
  Receive Date: 20190318
  Receipt Date: 20190318
  Transmission Date: 20190418
  Serious: Yes (Death, Hospitalization)
  Sender: FDA-Public Use
  Company Number: AR-ABBVIE-19K-007-2707845-00

PATIENT
  Age: 76 Year
  Sex: Female

DRUGS (2)
  1. HUMIRA [Suspect]
     Active Substance: ADALIMUMAB
     Indication: RHEUMATOID ARTHRITIS
     Route: 058
  2. HUMIRA [Suspect]
     Active Substance: ADALIMUMAB
     Indication: RHEUMATOID ARTHRITIS
     Route: 058
     Dates: start: 20170217

REACTIONS (3)
  - Vomiting [Unknown]
  - Multiple organ dysfunction syndrome [Fatal]
  - Diarrhoea [Unknown]

NARRATIVE: CASE EVENT DATE: 20181001
